FAERS Safety Report 25382530 (Version 1)
Quarter: 2025Q2

REPORT INFORMATION
  Report Type: Spontaneous
  Country: US (occurrence: US)
  Receive Date: 20250601
  Receipt Date: 20250601
  Transmission Date: 20250717
  Serious: No
  Sender: NOVARTIS
  Company Number: US-SANDOZ-PHEH2003US05724

PATIENT
  Sex: Female

DRUGS (3)
  1. LAMISIL [Suspect]
     Active Substance: TERBINAFINE HYDROCHLORIDE
     Indication: Dermatophytosis of nail
     Dosage: 250 MG, QD
     Route: 048
     Dates: start: 200207, end: 200210
  2. RECLAST [Suspect]
     Active Substance: ZOLEDRONIC ACID
     Indication: Product used for unknown indication
     Route: 065
  3. MOUNJARO [Concomitant]
     Active Substance: TIRZEPATIDE
     Indication: Diabetes mellitus
     Route: 065

REACTIONS (7)
  - Drug ineffective [Unknown]
  - Fall [Recovering/Resolving]
  - Muscle fatigue [Recovering/Resolving]
  - Nasopharyngitis [Unknown]
  - Urine output increased [Unknown]
  - Headache [Recovering/Resolving]
  - Oropharyngeal pain [Unknown]
